FAERS Safety Report 10349678 (Version 1)
Quarter: 2014Q3

REPORT INFORMATION
  Report Type: Spontaneous
  Country: US (occurrence: None)
  Receive Date: 20140728
  Receipt Date: 20140728
  Transmission Date: 20150326
  Serious: Yes (Disabling)
  Sender: FDA-Public Use
  Company Number: None

PATIENT
  Age: 26 Year
  Sex: Female
  Weight: 55.34 kg

DRUGS (1)
  1. BUPROPION XL 300 MG MYLAN [Suspect]
     Active Substance: BUPROPION
     Indication: DEPRESSION
     Dosage: 1 TABLET ONCE DAILY ORAL
     Route: 048
     Dates: start: 20140723, end: 20140726

REACTIONS (15)
  - Headache [None]
  - Dizziness [None]
  - Decreased appetite [None]
  - Migraine [None]
  - Panic attack [None]
  - Anxiety [None]
  - Drug effect variable [None]
  - Disturbance in attention [None]
  - Palpitations [None]
  - Affect lability [None]
  - Product substitution issue [None]
  - Abdominal discomfort [None]
  - Drug ineffective [None]
  - Mood altered [None]
  - Feeling abnormal [None]

NARRATIVE: CASE EVENT DATE: 20140726
